FAERS Safety Report 16730159 (Version 1)
Quarter: 2019Q4

REPORT INFORMATION
  Report Type: Spontaneous
  Country: US (occurrence: US)
  Receive Date: 20190821
  Receipt Date: 20190821
  Transmission Date: 20200122
  Serious: Yes (Life-Threatening, Hospitalization, Other)
  Sender: FDA-Public Use
  Company Number: None

PATIENT
  Age: 67 Year
  Sex: Female
  Weight: 67.5 kg

DRUGS (12)
  1. NORVASC [Concomitant]
     Active Substance: AMLODIPINE BESYLATE
  2. OXYCODONE [Concomitant]
     Active Substance: OXYCODONE
  3. TRIAMCINOLONE 0.1% UNG [Concomitant]
  4. LOSARTAN. [Concomitant]
     Active Substance: LOSARTAN
  5. SYNJARDY 12.5 - 1000 MG [Concomitant]
     Dates: start: 20190401
  6. FLUCONAZOLE. [Concomitant]
     Active Substance: FLUCONAZOLE
  7. MELOXICAM. [Concomitant]
     Active Substance: MELOXICAM
  8. NYSTATIN. [Concomitant]
     Active Substance: NYSTATIN
  9. SYNJARDY [Suspect]
     Active Substance: EMPAGLIFLOZIN\METFORMIN HYDROCHLORIDE
     Indication: DIABETES MELLITUS
     Route: 048
     Dates: start: 20190401, end: 20190816
  10. ACETAMINOPHEN. [Concomitant]
     Active Substance: ACETAMINOPHEN
  11. CELEXA [Concomitant]
     Active Substance: CITALOPRAM HYDROBROMIDE
  12. DOCUSATE [Concomitant]
     Active Substance: DOCUSATE

REACTIONS (10)
  - Tachycardia [None]
  - Atrial flutter [None]
  - Diarrhoea [None]
  - Tachypnoea [None]
  - Dyspnoea [None]
  - Nausea [None]
  - Confusional state [None]
  - Vomiting [None]
  - Hypotension [None]
  - Weight decreased [None]

NARRATIVE: CASE EVENT DATE: 20190820
